FAERS Safety Report 17078767 (Version 1)
Quarter: 2019Q4

REPORT INFORMATION
  Report Type: Spontaneous
  Country: US (occurrence: US)
  Receive Date: 20191127
  Receipt Date: 20191127
  Transmission Date: 20200122
  Serious: No
  Sender: FDA-Public Use
  Company Number: US-AUROBINDO-AUR-APL-2019-061196

PATIENT
  Age: 68 Year
  Sex: Female
  Weight: 57.6 kg

DRUGS (1)
  1. LOSARTAN POTASSIUM TABLETS USP 25MG [Suspect]
     Active Substance: LOSARTAN POTASSIUM
     Indication: HYPERTENSION
     Dosage: 1 DOSAGE FORM, DAILY (HIGHER DOSE: 50 MG AND 100 MG)
     Route: 065

REACTIONS (12)
  - Decreased appetite [Not Recovered/Not Resolved]
  - Hyperhidrosis [Not Recovered/Not Resolved]
  - Peripheral coldness [Not Recovered/Not Resolved]
  - Back pain [Not Recovered/Not Resolved]
  - Nasal congestion [Not Recovered/Not Resolved]
  - Affective disorder [Not Recovered/Not Resolved]
  - Nervousness [Not Recovered/Not Resolved]
  - Fatigue [Not Recovered/Not Resolved]
  - Dry mouth [Not Recovered/Not Resolved]
  - Feeling cold [Not Recovered/Not Resolved]
  - Thirst [Not Recovered/Not Resolved]
  - Asthenia [Not Recovered/Not Resolved]
